FAERS Safety Report 6948289-9 (Version None)
Quarter: 2010Q3

REPORT INFORMATION
  Report Type: 
  Country: None (occurrence: None)
  Receive Date: 20100828
  Receipt Date: 20100727
  Transmission Date: 20110219
  Serious: Yes (Other)
  Sender: FDA-Public Use
  Company Number: US-PAR PHARMACEUTICAL, INC-2010SCPR001957

PATIENT

DRUGS (1)
  1. METRONIDAZOLE [Suspect]
     Indication: CROHN'S DISEASE
     Dosage: UNK
     Route: 065

REACTIONS (3)
  - CEREBELLAR ATAXIA [None]
  - CEREBELLAR SYNDROME [None]
  - NEUROTOXICITY [None]
